FAERS Safety Report 4914071-7 (Version None)
Quarter: 2006Q1

REPORT INFORMATION
  Report Type: 
  Country: None (occurrence: None)
  Receive Date: 20060213
  Receipt Date: 20060202
  Transmission Date: 20060701
  Serious: Yes (Hospitalization)
  Sender: FDA-Public Use
  Company Number: 2006017043

PATIENT
  Age: 50 Year
  Sex: Female
  Weight: 85 kg

DRUGS (8)
  1. LYRICA [Suspect]
     Indication: RESTLESS LEGS SYNDROME
     Dosage: 300 MG (150 MG, 2 IN 1 D), ORAL
     Route: 048
     Dates: start: 20051117, end: 20051215
  2. METFORMIN HCL [Concomitant]
  3. ANASTROZOLE (ANASTROZOLE) [Concomitant]
  4. OMEPRAZOLE [Concomitant]
  5. CALCIUM WITH VITAMIN D (CALCIUM PHOSPHATE, CALCIUM SODIUM LACTATE, ERG [Concomitant]
  6. PROMETHAZINE [Concomitant]
  7. DIAZEPAM [Concomitant]
  8. NOZINAN (LEVOMEPROMAZINE) [Concomitant]

REACTIONS (33)
  - AGGRESSION [None]
  - AMNESIA [None]
  - ANGER [None]
  - DECREASED APPETITE [None]
  - DISORIENTATION [None]
  - DISTURBANCE IN ATTENTION [None]
  - DISTURBANCE IN SOCIAL BEHAVIOUR [None]
  - DYSGRAPHIA [None]
  - DYSPHAGIA [None]
  - EPILEPSY [None]
  - EUPHORIC MOOD [None]
  - EYE PAIN [None]
  - FALL [None]
  - FATIGUE [None]
  - HALLUCINATION [None]
  - HYPERACUSIS [None]
  - HYPERTENSION [None]
  - INSOMNIA [None]
  - IRRITABILITY [None]
  - MEMORY IMPAIRMENT [None]
  - NIGHTMARE [None]
  - PHOTOSENSITIVITY REACTION [None]
  - PSYCHOMOTOR HYPERACTIVITY [None]
  - REGRESSIVE BEHAVIOUR [None]
  - RESTLESSNESS [None]
  - SCREAMING [None]
  - SPEECH DISORDER [None]
  - SUSPICIOUSNESS [None]
  - TACHYCARDIA [None]
  - THIRST [None]
  - TREMOR [None]
  - VISION BLURRED [None]
  - WEIGHT DECREASED [None]
